FAERS Safety Report 11184116 (Version 4)
Quarter: 2015Q3

REPORT INFORMATION
  Report Type: Spontaneous
  Country: US (occurrence: US)
  Receive Date: 20150612
  Receipt Date: 20150922
  Transmission Date: 20151125
  Serious: Yes (Hospitalization, Other)
  Sender: FDA-Public Use
  Company Number: US-BAYER-2015-302118

PATIENT
  Age: 25 Year
  Sex: Female
  Weight: 68.27 kg

DRUGS (3)
  1. MACROBID [Concomitant]
     Active Substance: NITROFURANTOIN\NITROFURANTOIN MONOHYDRATE
     Dosage: 100 MG, EVERY 12 HOURS
     Route: 048
     Dates: start: 20150528
  2. FLAGYL [Concomitant]
     Active Substance: METRONIDAZOLE\METRONIDAZOLE HYDROCHLORIDE
     Dosage: 500 MG, BID
     Route: 048
     Dates: start: 20150528
  3. MIRENA [Suspect]
     Active Substance: LEVONORGESTREL
     Indication: CONTRACEPTION
     Dosage: 20 MCG/24HR, CONT
     Route: 015
     Dates: start: 20100302, end: 20150611

REACTIONS (20)
  - Genital haemorrhage [None]
  - Abdominal pain lower [None]
  - Uterine scar [None]
  - Ovarian cyst [None]
  - Drug ineffective [None]
  - Injury [None]
  - Adnexa uteri pain [None]
  - Device use error [None]
  - Abdominal pain [None]
  - Device dislocation [None]
  - Depression [None]
  - Pregnancy with contraceptive device [None]
  - Abortion spontaneous [None]
  - Anxiety [None]
  - Dysuria [None]
  - Pain [None]
  - Device difficult to use [None]
  - Device issue [None]
  - Uterine perforation [None]
  - Dyspareunia [None]

NARRATIVE: CASE EVENT DATE: 201004
